FAERS Safety Report 24596216 (Version 5)
Quarter: 2025Q2

REPORT INFORMATION
  Report Type: Spontaneous
  Country: JP (occurrence: JP)
  Receive Date: 20241110
  Receipt Date: 20250613
  Transmission Date: 20250716
  Serious: Yes (Other)
  Sender: AMGEN
  Company Number: JP-AMGEN-JPNSP2024218545

PATIENT
  Age: 6 Decade
  Sex: Female

DRUGS (4)
  1. BLINCYTO [Suspect]
     Active Substance: BLINATUMOMAB
     Indication: B precursor type acute leukaemia
     Dosage: UNK, QD, DRIP INFUSION
     Route: 040
     Dates: start: 20241008, end: 20241029
  2. BLINCYTO [Suspect]
     Active Substance: BLINATUMOMAB
     Dosage: UNK, QD, DRIP INFUSION
     Route: 040
     Dates: start: 202411, end: 2024
  3. BLINCYTO [Suspect]
     Active Substance: BLINATUMOMAB
     Route: 040
  4. BLINCYTO [Suspect]
     Active Substance: BLINATUMOMAB
     Dosage: 9 MICROGRAM, QD
     Route: 040

REACTIONS (3)
  - Immune effector cell-associated neurotoxicity syndrome [Recovered/Resolved]
  - Epilepsy [Recovered/Resolved]
  - Adverse event [Unknown]

NARRATIVE: CASE EVENT DATE: 20240101
